FAERS Safety Report 5422313-7 (Version None)
Quarter: 2007Q3

REPORT INFORMATION
  Report Type: 
  Country: None (occurrence: None)
  Receive Date: 20070822
  Receipt Date: 20070820
  Transmission Date: 20080115
  Serious: Yes (Other)
  Sender: FDA-Public Use
  Company Number: GB-BAYER-200714371GDS

PATIENT
  Age: 59 Year
  Sex: Male

DRUGS (7)
  1. LEVITRA [Suspect]
     Indication: DRUG USE FOR UNKNOWN INDICATION
     Route: 048
  2. LEVITRA [Suspect]
     Route: 048
  3. FLOMAX [Concomitant]
     Indication: BLADDER DISORDER
     Route: 065
  4. COVERSYL [Concomitant]
     Indication: HYPERTENSION
     Route: 065
  5. LIPITOR [Concomitant]
     Indication: BLOOD CHOLESTEROL INCREASED
     Route: 065
  6. ANDRIOL [Concomitant]
     Indication: ANDROGEN DEFICIENCY
     Route: 065
  7. EFFEXOR [Concomitant]
     Indication: STRESS
     Route: 065

REACTIONS (4)
  - HEADACHE [None]
  - ILL-DEFINED DISORDER [None]
  - NAUSEA [None]
  - UNEVALUABLE EVENT [None]
